FAERS Safety Report 4309867-9 (Version None)
Quarter: 2004Q1

REPORT INFORMATION
  Report Type: 
  Country: None (occurrence: None)
  Receive Date: 20040303
  Receipt Date: 20040108
  Transmission Date: 20041129
  Serious: No
  Sender: FDA-Public Use
  Company Number: US-BRISTOL-MYERS SQUIBB COMPANY-12473583

PATIENT
  Age: 36 Year
  Sex: Female
  Weight: 107 kg

DRUGS (16)
  1. ABILIFY [Suspect]
     Indication: DEPRESSION
     Dosage: DOSING INITIATED AT 2.8 MG ON 26-NOV-2003; INCREASED TO 10 MG 3-1/2 WEEKS AGO.
     Route: 048
     Dates: start: 20031126
  2. ABILIFY [Suspect]
     Indication: ANXIETY
     Dosage: DOSING INITIATED AT 2.8 MG ON 26-NOV-2003; INCREASED TO 10 MG 3-1/2 WEEKS AGO.
     Route: 048
     Dates: start: 20031126
  3. EFFEXOR XR [Concomitant]
  4. TOPAMAX [Concomitant]
  5. METAXALONE [Concomitant]
  6. TERAZOSIN HCL [Concomitant]
  7. ZANTAC [Concomitant]
  8. SEREVENT [Concomitant]
  9. VERAPAMIL [Concomitant]
  10. ACIPHEX [Concomitant]
  11. YASMIN [Concomitant]
  12. ALBUTEROL [Concomitant]
  13. FLOVENT [Concomitant]
  14. SPIRONOLACTONE [Concomitant]
  15. NYSTATIN [Concomitant]
  16. DIFLUCAN [Concomitant]

REACTIONS (2)
  - ANXIETY [None]
  - BLOOD PRESSURE INCREASED [None]
